FAERS Safety Report 6667694-1 (Version None)
Quarter: 2010Q2

REPORT INFORMATION
  Report Type: 
  Country: None (occurrence: None)
  Receive Date: 20100405
  Receipt Date: 20100331
  Transmission Date: 20101027
  Serious: Yes (Death)
  Sender: FDA-Public Use
  Company Number: JP-BRISTOL-MYERS SQUIBB COMPANY-15039860

PATIENT
  Age: 58 Year
  Sex: Male

DRUGS (2)
  1. PACLITAXEL [Suspect]
     Indication: NON-SMALL CELL LUNG CANCER
  2. NIMUSTINE [Suspect]
     Indication: NON-SMALL CELL LUNG CANCER

REACTIONS (1)
  - ACUTE RESPIRATORY FAILURE [None]
